FAERS Safety Report 7495157-2 (Version None)
Quarter: 2011Q2

REPORT INFORMATION
  Report Type: 
  Country: None (occurrence: None)
  Receive Date: 20110520
  Receipt Date: 20110511
  Transmission Date: 20111010
  Serious: Yes (Hospitalization)
  Sender: FDA-Public Use
  Company Number: SE-ASTRAZENECA-2011SE28375

PATIENT
  Age: 82 Year
  Sex: Male

DRUGS (8)
  1. FELODIPINE [Suspect]
     Indication: ESSENTIAL HYPERTENSION
     Route: 048
     Dates: end: 20110101
  2. LEVOTHYROXINE SODIUM [Concomitant]
  3. BEHEPAN [Concomitant]
  4. ENALAPRIL MALEATE [Suspect]
     Indication: ESSENTIAL HYPERTENSION
     Route: 048
  5. ENALAPRIL MALEATE [Suspect]
     Dosage: DOSE HALFED
     Route: 048
  6. TROMBYL [Concomitant]
  7. ALLOPURINOL [Concomitant]
  8. SIMVASTATIN [Concomitant]

REACTIONS (2)
  - ORTHOSTATIC HYPOTENSION [None]
  - SYNCOPE [None]
